FAERS Safety Report 17468278 (Version 3)
Quarter: 2020Q1

REPORT INFORMATION
  Report Type: Report from Study
  Country: US (occurrence: US)
  Receive Date: 20200227
  Receipt Date: 20200304
  Transmission Date: 20200409
  Serious: Yes (Death)
  Sender: FDA-Public Use
  Company Number: US-PFIZER INC-2020086014

PATIENT
  Age: 50 Year
  Sex: Female

DRUGS (1)
  1. PENTOSTATIN. [Suspect]
     Active Substance: PENTOSTATIN
     Indication: CUTANEOUS T-CELL LYMPHOMA
     Dosage: 25 MG/M2, UNK
     Route: 040

REACTIONS (2)
  - Renal failure [Fatal]
  - Coma [Fatal]
